FAERS Safety Report 9861856 (Version 2)
Quarter: 2014Q1

REPORT INFORMATION
  Report Type: Spontaneous
  Country: US (occurrence: US)
  Receive Date: 20140203
  Receipt Date: 20140214
  Transmission Date: 20141002
  Serious: No
  Sender: FDA-Public Use
  Company Number: US-PFIZER INC-2014027385

PATIENT
  Age: 57 Year
  Sex: Male

DRUGS (8)
  1. NEURONTIN [Suspect]
     Indication: DIABETIC NEUROPATHY
     Dosage: 800 MG, 3X/DAY
     Route: 048
     Dates: start: 201105, end: 201310
  2. METFORMIN [Concomitant]
     Dosage: UNK
  3. GLIMEPIRIDE [Concomitant]
     Dosage: UNK
  4. VITAMIN D [Concomitant]
     Dosage: UNK
  5. ZANTAC [Concomitant]
     Dosage: UNK
  6. PRAVASTATIN [Concomitant]
     Dosage: UNK
  7. OMEPRAZOLE [Concomitant]
     Dosage: UNK
  8. LISINOPRIL [Concomitant]
     Dosage: UNK

REACTIONS (2)
  - Off label use [Unknown]
  - Pain [Unknown]
